FAERS Safety Report 9223401 (Version 3)
Quarter: 2013Q4

REPORT INFORMATION
  Report Type: Report from Study
  Country: CA (occurrence: CA)
  Receive Date: 20130410
  Receipt Date: 20131118
  Transmission Date: 20140711
  Serious: Yes (Other)
  Sender: FDA-Public Use
  Company Number: CA-ROCHE-1210055

PATIENT
  Sex: Female

DRUGS (5)
  1. AVASTIN [Suspect]
     Indication: GLIOBLASTOMA
     Route: 042
     Dates: start: 20090401, end: 20130329
  2. AVASTIN [Suspect]
     Route: 042
     Dates: start: 20111121
  3. AVASTIN [Suspect]
     Route: 042
     Dates: start: 20121121
  4. AVASTIN [Suspect]
     Route: 042
     Dates: start: 20121214
  5. DIPHENHYDRAMINE HCL [Concomitant]
     Indication: PREMEDICATION
     Route: 048
     Dates: start: 20121214, end: 20130125

REACTIONS (5)
  - Cataract [Unknown]
  - Endodontic procedure [Unknown]
  - Surgery [Unknown]
  - Fatigue [Not Recovered/Not Resolved]
  - Disease progression [Not Recovered/Not Resolved]
